FAERS Safety Report 4320464-1 (Version None)
Quarter: 2004Q1

REPORT INFORMATION
  Report Type: 
  Country: None (occurrence: None)
  Receive Date: 20040319
  Receipt Date: 20040319
  Transmission Date: 20041129
  Serious: Yes (Other)
  Sender: FDA-Public Use
  Company Number: None

PATIENT
  Age: 34 Year
  Sex: Female
  Weight: 68.9467 kg

DRUGS (3)
  1. LEVAQUIN [Suspect]
     Indication: SINUSITIS
     Dosage: 500 MG 1X/\DAY/14D ORAL
     Route: 048
     Dates: start: 20040317, end: 20040318
  2. PREDNISONE [Concomitant]
  3. RHINOCORT [Concomitant]

REACTIONS (12)
  - ANGER [None]
  - ARTHRALGIA [None]
  - DIZZINESS [None]
  - DYSPNOEA [None]
  - FEAR [None]
  - FEELING ABNORMAL [None]
  - HALLUCINATION, AUDITORY [None]
  - INSOMNIA [None]
  - NIGHTMARE [None]
  - PHOTOPHOBIA [None]
  - THINKING ABNORMAL [None]
  - VERTIGO [None]
